FAERS Safety Report 11615872 (Version 1)
Quarter: 2015Q4

REPORT INFORMATION
  Report Type: Spontaneous
  Country: US (occurrence: US)
  Receive Date: 20151009
  Receipt Date: 20151009
  Transmission Date: 20160304
  Serious: Yes (Hospitalization, Other)
  Sender: FDA-Public Use
  Company Number: US-GLAXOSMITHKLINE-US2015140837

PATIENT
  Age: 73 Year
  Sex: Male

DRUGS (16)
  1. DIGOXIN. [Concomitant]
     Active Substance: DIGOXIN
  2. GABAPENTIN. [Concomitant]
     Active Substance: GABAPENTIN
  3. ALLOPURINOL. [Concomitant]
     Active Substance: ALLOPURINOL
  4. NITROGLYCERIN. [Concomitant]
     Active Substance: NITROGLYCERIN
  5. PROAIR HFA [Concomitant]
     Active Substance: ALBUTEROL SULFATE
  6. NEBULIZED ALBUTEROL [Concomitant]
     Active Substance: ALBUTEROL
  7. TAMSULOSIN [Concomitant]
     Active Substance: TAMSULOSIN
  8. WARFARIN [Concomitant]
     Active Substance: WARFARIN
  9. FLUTICASONE NASAL SPRAY [Concomitant]
     Active Substance: FLUTICASONE\FLUTICASONE PROPIONATE
  10. TORSEMIDE. [Concomitant]
     Active Substance: TORSEMIDE
  11. CARVEDILOL. [Concomitant]
     Active Substance: CARVEDILOL
  12. GLIPIZIDE. [Concomitant]
     Active Substance: GLIPIZIDE
  13. ADVAIR DISKUS [Suspect]
     Active Substance: FLUTICASONE PROPIONATE\SALMETEROL XINAFOATE
     Indication: CHRONIC OBSTRUCTIVE PULMONARY DISEASE
     Dosage: 1 PUFF(S), BID
     Route: 055
     Dates: start: 2011
  14. ASPIRIN (BABY) [Concomitant]
     Active Substance: ASPIRIN
  15. MORPHINE [Concomitant]
     Active Substance: MORPHINE
  16. LORAZEPAM. [Concomitant]
     Active Substance: LORAZEPAM

REACTIONS (12)
  - Myocardial infarction [Recovered/Resolved with Sequelae]
  - Dyspnoea [Recovered/Resolved]
  - Atrial fibrillation [Not Recovered/Not Resolved]
  - Pyrexia [Recovered/Resolved]
  - Cardiac failure [Not Recovered/Not Resolved]
  - Cholecystectomy [Recovered/Resolved]
  - Implantable defibrillator insertion [Not Recovered/Not Resolved]
  - Blood electrolytes decreased [Recovered/Resolved]
  - Fluid overload [Recovered/Resolved]
  - Stent placement [Unknown]
  - Cardiomyopathy [Not Recovered/Not Resolved]
  - Malignant melanoma [Recovered/Resolved]

NARRATIVE: CASE EVENT DATE: 201201
